FAERS Safety Report 8875861 (Version 2)
Quarter: 2012Q4

REPORT INFORMATION
  Report Type: 
  Country: US (occurrence: US)
  Receive Date: 20121030
  Receipt Date: 20121105
  Transmission Date: 20130627
  Serious: No
  Sender: FDA-Public Use
  Company Number: US-B.I. PHARMACEUTICALS,INC./RIDGEFIELD-2012-BP-26597BP

PATIENT
  Age: 57 Year
  Sex: Female
  Weight: 32 kg

DRUGS (4)
  1. SPIRIVA [Suspect]
     Indication: CHRONIC OBSTRUCTIVE PULMONARY DISEASE
     Dosage: 18 mcg
     Route: 055
  2. VENTOLIN HFA [Concomitant]
     Route: 055
  3. ADVAIR [Concomitant]
     Route: 055
  4. NEBULIZER [Concomitant]
     Route: 055

REACTIONS (2)
  - Wheezing [Not Recovered/Not Resolved]
  - Weight decreased [Not Recovered/Not Resolved]
